FAERS Safety Report 5584763-8 (Version None)
Quarter: 2008Q1

REPORT INFORMATION
  Report Type: 
  Country: None (occurrence: None)
  Receive Date: 20080103
  Receipt Date: 20071218
  Transmission Date: 20080703
  Serious: Yes (Hospitalization)
  Sender: FDA-Public Use
  Company Number: 100#08#2007-05328

PATIENT
  Age: 62 Year
  Sex: Male

DRUGS (3)
  1. PRAVASTATIN [Suspect]
     Indication: DRUG USE FOR UNKNOWN INDICATION
     Dosage: 10 MG ,  MANY YEARS, 20 MG
  2. EFALIZUMAB (EFALIZUMAB) (EFALIZUMAB) [Suspect]
     Indication: DRUG USE FOR UNKNOWN INDICATION
     Dosage: SUBCUTANEOUS
     Route: 058
  3. FOSINOPRIL (FOSONOPRIL) (FOSINOPRIL) [Concomitant]

REACTIONS (9)
  - ASPARTATE AMINOTRANSFERASE INCREASED [None]
  - BLOOD POTASSIUM INCREASED [None]
  - CAPILLARY PERMEABILITY INCREASED [None]
  - DRUG INTERACTION [None]
  - HAEMOCONCENTRATION [None]
  - HYPERGLYCAEMIA [None]
  - HYPONATRAEMIA [None]
  - RENAL FAILURE ACUTE [None]
  - RHABDOMYOLYSIS [None]
